FAERS Safety Report 10540898 (Version 2)
Quarter: 2014Q4

REPORT INFORMATION
  Report Type: Spontaneous
  Country: CH (occurrence: None)
  Receive Date: 20141022
  Receipt Date: 20141124
  Transmission Date: 20150529
  Serious: Yes (Other)
  Sender: FDA-Public Use
  Company Number: 20140627

PATIENT
  Age: 52 Year
  Sex: Female
  Weight: 55 kg

DRUGS (1)
  1. FERINJECT [Suspect]
     Active Substance: FERRIC CARBOXYMALTOSE
     Indication: IRON DEFICIENCY
     Dosage: IN THE MORNING
     Route: 041
     Dates: start: 20140912, end: 20140912

REACTIONS (9)
  - Malaise [None]
  - Hyperhidrosis [None]
  - Head discomfort [None]
  - Contusion [None]
  - Influenza like illness [None]
  - Fall [None]
  - Nausea [None]
  - Loss of consciousness [None]
  - Dizziness [None]

NARRATIVE: CASE EVENT DATE: 201409
